FAERS Safety Report 19752195 (Version 3)
Quarter: 2023Q1

REPORT INFORMATION
  Report Type: Report from Study
  Country: JP (occurrence: JP)
  Receive Date: 20210827
  Receipt Date: 20230301
  Transmission Date: 20230417
  Serious: Yes (Hospitalization)
  Sender: FDA-Public Use
  Company Number: JP-TAKEDA-2021TJP079150

PATIENT
  Age: 32 Year
  Sex: Female

DRUGS (6)
  1. VEDOLIZUMAB [Suspect]
     Active Substance: VEDOLIZUMAB
     Indication: Crohn^s disease
     Dosage: 300 MILLIGRAM
     Route: 065
     Dates: start: 20210422, end: 20210603
  2. IMURAN [Concomitant]
     Active Substance: AZATHIOPRINE
     Indication: Crohn^s disease
     Dosage: UNK
     Route: 065
     Dates: end: 20210805
  3. BUDESONIDE [Concomitant]
     Active Substance: BUDESONIDE
     Indication: Crohn^s disease
     Dosage: UNK
     Route: 065
     Dates: end: 20210630
  4. AMINO ACIDS\CARBOHYDRATES\MINERALS\SOYBEAN OIL\VITAMINS [Concomitant]
     Active Substance: AMINO ACIDS\CARBOHYDRATES\MINERALS\SOYBEAN OIL\VITAMINS
     Indication: Crohn^s disease
     Dosage: UNK
     Route: 065
  5. PREDNISOLONE [Concomitant]
     Active Substance: PREDNISOLONE
     Indication: Crohn^s disease
     Dosage: UNK
     Route: 065
     Dates: start: 20210701, end: 20210712
  6. CEFMETAZOLE SODIUM [Concomitant]
     Active Substance: CEFMETAZOLE SODIUM
     Indication: Crohn^s disease
     Dosage: UNK
     Route: 065
     Dates: start: 20210713, end: 20210719

REACTIONS (4)
  - Pyrexia [Recovering/Resolving]
  - Abdominal pain [Recovering/Resolving]
  - C-reactive protein increased [Recovering/Resolving]
  - Stoma site abscess [Recovering/Resolving]

NARRATIVE: CASE EVENT DATE: 20210712
